FAERS Safety Report 14272694 (Version 1)
Quarter: 2017Q4

REPORT INFORMATION
  Report Type: Spontaneous
  Country: US (occurrence: None)
  Receive Date: 20171212
  Receipt Date: 20171212
  Transmission Date: 20180321
  Serious: Yes (Death)
  Sender: FDA-Public Use
  Company Number: None

PATIENT
  Age: 54 Year
  Sex: Male
  Weight: 163.3 kg

DRUGS (1)
  1. CISPLATIN. [Suspect]
     Active Substance: CISPLATIN
     Dates: end: 20080605

REACTIONS (4)
  - Pharyngeal necrosis [None]
  - Tongue neoplasm malignant stage unspecified [None]
  - Carotid artery perforation [None]
  - Ulcer [None]

NARRATIVE: CASE EVENT DATE: 20150412
